FAERS Safety Report 8536210 (Version 3)
Quarter: 2012Q4

REPORT INFORMATION
  Report Type: 
  Country: US (occurrence: US)
  Receive Date: 20120430
  Receipt Date: 20120921
  Transmission Date: 20130627
  Serious: Yes (Hospitalization)
  Sender: FDA-Public Use
  Company Number: US-BAYER-2012-039312

PATIENT
  Age: 17 Year
  Sex: Female
  Weight: 102.4 kg

DRUGS (1)
  1. YAZ [Suspect]
     Indication: CONTRACEPTION
     Dosage: UNK
     Dates: start: 20080418, end: 20100201

REACTIONS (4)
  - Cholecystectomy [None]
  - Abdominal pain upper [None]
  - Injury [None]
  - Pain [None]
